FAERS Safety Report 17369316 (Version 1)
Quarter: 2020Q1

REPORT INFORMATION
  Report Type: Spontaneous
  Country: US (occurrence: US)
  Receive Date: 20200120
  Receipt Date: 20200120
  Transmission Date: 20200409
  Serious: Yes (Hospitalization)
  Sender: FDA-Public Use
  Company Number: None

PATIENT
  Age: 56 Year
  Sex: Female

DRUGS (2)
  1. TACROLIMUS 0.5MG [Suspect]
     Active Substance: TACROLIMUS
     Indication: GLAUCOMA
     Route: 048
     Dates: start: 20190122
  2. MYCOPHENOLATE 250 MG CAP [Suspect]
     Active Substance: MYCOPHENOLIC ACID
     Indication: GLAUCOMA
     Route: 048
     Dates: start: 20190122

REACTIONS (1)
  - Condition aggravated [None]
